FAERS Safety Report 6371130-2 (Version None)
Quarter: 2009Q3

REPORT INFORMATION
  Report Type: 
  Country: None (occurrence: None)
  Receive Date: 20090923
  Receipt Date: 20090918
  Transmission Date: 20100115
  Serious: Yes (Hospitalization, Disabling)
  Sender: FDA-Public Use
  Company Number: US-MERCK-0907USA02810

PATIENT
  Age: 58 Year
  Sex: Female

DRUGS (3)
  1. FOSAMAX [Suspect]
     Indication: OSTEOPENIA
     Route: 048
  2. FOSAMAX [Suspect]
     Indication: POSTMENOPAUSE
     Route: 048
  3. TAMOXIFEN CITRATE [Concomitant]
     Route: 065

REACTIONS (4)
  - FALL [None]
  - FEMUR FRACTURE [None]
  - IMPAIRED HEALING [None]
  - PAIN [None]
